FAERS Safety Report 10246023 (Version 2)
Quarter: 2014Q2

REPORT INFORMATION
  Report Type: Spontaneous
  Country: CA (occurrence: CA)
  Receive Date: 20140619
  Receipt Date: 20140620
  Transmission Date: 20141212
  Serious: Yes (Death, Life-Threatening, Hospitalization)
  Sender: FDA-Public Use
  Company Number: CA-ROCHE-1420688

PATIENT
  Age: 11 Year
  Sex: Male

DRUGS (2)
  1. TRETINOIN [Suspect]
     Indication: ACUTE PROMYELOCYTIC LEUKAEMIA
     Route: 065
  2. IDARUBICIN [Concomitant]
     Route: 065

REACTIONS (7)
  - Generalised tonic-clonic seizure [Fatal]
  - Hemiparesis [Fatal]
  - Depressed level of consciousness [Fatal]
  - Endocarditis noninfective [Fatal]
  - Venous thrombosis [Fatal]
  - Atrial thrombosis [Fatal]
  - Haemorrhage [Fatal]
